FAERS Safety Report 5386051-1 (Version None)
Quarter: 2007Q3

REPORT INFORMATION
  Report Type: 
  Country: None (occurrence: None)
  Receive Date: 20070710
  Receipt Date: 20070627
  Transmission Date: 20080115
  Serious: Yes (Other)
  Sender: FDA-Public Use
  Company Number: MC200700499

PATIENT
  Age: 61 Year
  Sex: Female

DRUGS (4)
  1. ANGIOMAX [Suspect]
     Dates: start: 20070622
  2. ASPIRIN [Concomitant]
  3. BETA BLOCKING AGENTS [Concomitant]
  4. ACE INHIBITOR NOS [Concomitant]

REACTIONS (3)
  - COAGULATION TIME ABNORMAL [None]
  - CORONARY ARTERY THROMBOSIS [None]
  - PROCEDURAL COMPLICATION [None]
